FAERS Safety Report 10853857 (Version 3)
Quarter: 2015Q1

REPORT INFORMATION
  Report Type: Spontaneous
  Country: GR (occurrence: GR)
  Receive Date: 20150223
  Receipt Date: 20150313
  Transmission Date: 20150721
  Serious: Yes (Hospitalization)
  Sender: FDA-Public Use
  Company Number: GR-RANBAXY-2015RR-93077

PATIENT
  Age: 80 Year
  Sex: Female

DRUGS (1)
  1. DONEPEZIL [Suspect]
     Active Substance: DONEPEZIL
     Indication: DEMENTIA ALZHEIMER^S TYPE
     Dosage: 30 MG, DAILY
     Route: 065

REACTIONS (3)
  - Medication error [Recovered/Resolved]
  - Myoclonus [Recovered/Resolved]
  - Overdose [Recovered/Resolved]
